FAERS Safety Report 4712478-4 (Version None)
Quarter: 2005Q2

REPORT INFORMATION
  Report Type: 
  Country: None (occurrence: None)
  Receive Date: 20050629
  Receipt Date: 20050330
  Transmission Date: 20051028
  Serious: No
  Sender: FDA-Public Use
  Company Number: 05P-163-0295657-00

PATIENT
  Age: 61 Year
  Sex: Male
  Weight: 107 kg

DRUGS (12)
  1. HUMIRA [Suspect]
     Indication: RHEUMATOID ARTHRITIS
     Dosage: 40 MG, 1 IN 2 WK, SUBCUTANEOUS
     Route: 058
     Dates: start: 20050316
  2. METHOTREXATE [Concomitant]
  3. PREDNISONE [Concomitant]
  4. METOPROLOL SUCCINATE [Concomitant]
  5. CLOPIDOGREL BISULFATE [Concomitant]
  6. PRANDIN [Concomitant]
  7. FENOFIBRATE [Concomitant]
  8. NICOTINIC ACID [Concomitant]
  9. METFORMIN [Concomitant]
  10. LISINOPRIL [Concomitant]
  11. ASPIRIN [Concomitant]
  12. ZOCOR [Concomitant]

REACTIONS (2)
  - NASOPHARYNGITIS [None]
  - PYREXIA [None]
